FAERS Safety Report 10903300 (Version 1)
Quarter: 2015Q1

REPORT INFORMATION
  Report Type: Spontaneous
  Country: US (occurrence: None)
  Receive Date: 20150304
  Receipt Date: 20150304
  Transmission Date: 20150721
  Serious: Yes (Death, Life-Threatening, Hospitalization)
  Sender: FDA-Public Use
  Company Number: US-MDCO-14-00294

PATIENT
  Age: 57 Year
  Sex: Male
  Weight: 124.7 kg

DRUGS (1)
  1. ANGIOMAX [Suspect]
     Active Substance: BIVALIRUDIN
     Indication: CATHETERISATION CARDIAC
     Dosage: 2 VIALS, INTRAVENOUUS DRIP
     Route: 041
     Dates: start: 20140511, end: 20140511

REACTIONS (5)
  - Product measured potency issue [None]
  - Cardiac arrest [None]
  - Product quality issue [None]
  - Drug effect decreased [None]
  - No therapeutic response [None]

NARRATIVE: CASE EVENT DATE: 20140511
